FAERS Safety Report 23020568 (Version 19)
Quarter: 2025Q3

REPORT INFORMATION
  Report Type: Report from Study
  Country: US (occurrence: US)
  Receive Date: 20231003
  Receipt Date: 20250704
  Transmission Date: 20251021
  Serious: Yes (Other)
  Sender: TAKEDA
  Company Number: US-TAKEDA-US202032671

PATIENT
  Age: 42 Year
  Sex: Female
  Weight: 65 kg

DRUGS (53)
  1. LANADELUMAB [Suspect]
     Active Substance: LANADELUMAB
     Indication: Immune system disorder
     Dosage: 300 MILLIGRAM, Q2WEEKS
     Dates: start: 201912
  2. LANADELUMAB [Suspect]
     Active Substance: LANADELUMAB
     Indication: Hyperemesis gravidarum
     Dosage: 300 MILLIGRAM, Q2WEEKS
     Dates: start: 20210209
  3. LANADELUMAB [Suspect]
     Active Substance: LANADELUMAB
     Indication: Nausea
     Dosage: 300 MILLIGRAM, Q2WEEKS
  4. LANADELUMAB [Suspect]
     Active Substance: LANADELUMAB
     Indication: Hereditary angioedema
  5. LANADELUMAB [Suspect]
     Active Substance: LANADELUMAB
     Indication: Angioedema
     Dosage: 300 MILLIGRAM, Q2WEEKS
  6. FIRAZYR [Suspect]
     Active Substance: ICATIBANT ACETATE
     Indication: Hereditary angioedema
  7. FIRAZYR [Suspect]
     Active Substance: ICATIBANT ACETATE
  8. RUCONEST [Suspect]
     Active Substance: CONESTAT ALFA
     Indication: Immune system disorder
  9. RUCONEST [Suspect]
     Active Substance: CONESTAT ALFA
     Dosage: UNK UNK, QD
  10. CEPHALEXIN [Suspect]
     Active Substance: CEPHALEXIN
     Indication: Catheter site cellulitis
  11. OXYBUTYNIN CHLORIDE [Concomitant]
     Active Substance: OXYBUTYNIN CHLORIDE
  12. TOLTERODINE TARTRATE [Concomitant]
     Active Substance: TOLTERODINE TARTRATE
     Indication: Product used for unknown indication
  13. SULFASALAZINE [Concomitant]
     Active Substance: SULFASALAZINE
  14. PANTOPRAZOLE SODIUM [Concomitant]
     Active Substance: PANTOPRAZOLE SODIUM
  15. CLINDAMYCIN HYDROCHLORIDE [Concomitant]
     Active Substance: CLINDAMYCIN HYDROCHLORIDE
  16. PROCHLORPERAZINE MALEATE [Concomitant]
     Active Substance: PROCHLORPERAZINE MALEATE
  17. APRISO [Concomitant]
     Active Substance: MESALAMINE
     Indication: Product used for unknown indication
  18. DICYCLOMINE HYDROCHLORIDE [Concomitant]
     Active Substance: DICYCLOMINE HYDROCHLORIDE
  19. GABAPENTIN [Concomitant]
     Active Substance: GABAPENTIN
  20. TROSPIUM CHLORIDE [Concomitant]
     Active Substance: TROSPIUM CHLORIDE
     Indication: Product used for unknown indication
  21. NEXIUM [Concomitant]
     Active Substance: ESOMEPRAZOLE MAGNESIUM
     Indication: Product used for unknown indication
  22. SUCRALFATE [Concomitant]
     Active Substance: SUCRALFATE
     Indication: Product used for unknown indication
  23. OXCARBAZEPINE [Concomitant]
     Active Substance: OXCARBAZEPINE
     Indication: Product used for unknown indication
  24. HYDROXYCHLOROQUINE SULFATE [Concomitant]
     Active Substance: HYDROXYCHLOROQUINE SULFATE
  25. OXYCONTIN [Concomitant]
     Active Substance: OXYCODONE HYDROCHLORIDE
     Indication: Product used for unknown indication
  26. FAMOTIDINE [Concomitant]
     Active Substance: FAMOTIDINE
     Indication: Product used for unknown indication
  27. NURTEC ODT [Concomitant]
     Active Substance: RIMEGEPANT SULFATE
  28. BUSPIRONE HCL [Concomitant]
     Active Substance: BUSPIRONE HYDROCHLORIDE
  29. OXYCODONE HYDROCHLORIDE [Concomitant]
     Active Substance: OXYCODONE HYDROCHLORIDE
  30. MYRBETRIQ [Concomitant]
     Active Substance: MIRABEGRON
  31. BACTRIM DS [Concomitant]
     Active Substance: SULFAMETHOXAZOLE\TRIMETHOPRIM
     Indication: Product used for unknown indication
  32. ATOMOXETINE HYDROCHLORIDE [Concomitant]
     Active Substance: ATOMOXETINE HYDROCHLORIDE
  33. UBRELVY [Concomitant]
     Active Substance: UBROGEPANT
  34. METAXALONE [Concomitant]
     Active Substance: METAXALONE
  35. ATOMOXETINE [Concomitant]
     Active Substance: ATOMOXETINE
     Indication: Product used for unknown indication
  36. HEPARIN [Concomitant]
     Active Substance: HEPARIN SODIUM
     Indication: Product used for unknown indication
  37. SODIUM CHLORIDE [Concomitant]
     Active Substance: SODIUM CHLORIDE
     Indication: Product used for unknown indication
  38. STERILE WATER [Concomitant]
     Active Substance: WATER
     Indication: Product used for unknown indication
  39. EPINEPHRINE [Concomitant]
     Active Substance: EPINEPHRINE
     Indication: Product used for unknown indication
  40. OXYCODONE [Concomitant]
     Active Substance: OXYCODONE
     Indication: Product used for unknown indication
  41. NEURONTIN [Concomitant]
     Active Substance: GABAPENTIN
     Indication: Product used for unknown indication
  42. BACLOFEN [Concomitant]
     Active Substance: BACLOFEN
     Indication: Product used for unknown indication
  43. ZOFRAN [Concomitant]
     Active Substance: ONDANSETRON HYDROCHLORIDE
     Indication: Product used for unknown indication
  44. DICYCLOMINE [Concomitant]
     Active Substance: DICYCLOMINE HYDROCHLORIDE
     Indication: Product used for unknown indication
  45. AMOXICILLIN [Concomitant]
     Active Substance: AMOXICILLIN
  46. ONDANSETRON HYDROCHLORIDE [Concomitant]
     Active Substance: ONDANSETRON HYDROCHLORIDE
  47. AMITRIPTYLINE HYDROCHLORIDE [Concomitant]
     Active Substance: AMITRIPTYLINE HYDROCHLORIDE
  48. ZITHROMAX [Concomitant]
     Active Substance: AZITHROMYCIN DIHYDRATE
  49. FOLIC ACID [Concomitant]
     Active Substance: FOLIC ACID
  50. METHOTREXATE [Concomitant]
     Active Substance: METHOTREXATE
  51. FLUTICASONE PROPIONATE [Concomitant]
     Active Substance: FLUTICASONE PROPIONATE
  52. CIPROFLOXACIN [Concomitant]
     Active Substance: CIPROFLOXACIN
  53. DEXAMETHASONE [Concomitant]
     Active Substance: DEXAMETHASONE

REACTIONS (27)
  - Rheumatoid arthritis [Unknown]
  - Deafness [Unknown]
  - Constipation [Unknown]
  - Ear infection [Unknown]
  - Sinusitis [Unknown]
  - Migraine [Unknown]
  - Urinary tract infection [Unknown]
  - Stress [Unknown]
  - Skin discolouration [Unknown]
  - Periorbital swelling [Unknown]
  - Sinus congestion [Unknown]
  - Catheter site cellulitis [Unknown]
  - Nausea [Recovered/Resolved]
  - Product dose omission issue [Unknown]
  - Inappropriate schedule of product administration [Unknown]
  - Product use in unapproved indication [Unknown]
  - Drug ineffective [Unknown]
  - Contusion [Unknown]
  - Skin lesion [Unknown]
  - Infusion site erythema [Unknown]
  - Infusion site pain [Unknown]
  - Infusion site infection [Unknown]
  - Skin infection [Unknown]
  - Inguinal hernia [Unknown]
  - Femoral hernia [Unknown]
  - Dermatitis contact [Unknown]
  - Hereditary angioedema [Recovered/Resolved]

NARRATIVE: CASE EVENT DATE: 20210209
